FAERS Safety Report 14072036 (Version 2)
Quarter: 2018Q1

REPORT INFORMATION
  Report Type: Spontaneous
  Country: US (occurrence: US)
  Receive Date: 20171010
  Receipt Date: 20180105
  Transmission Date: 20180508
  Serious: No
  Sender: FDA-Public Use
  Company Number: US-SA-2017SA156326

PATIENT
  Age: 37 Year
  Sex: Female
  Weight: 78.47 kg

DRUGS (6)
  1. DUPIXENT [Suspect]
     Active Substance: DUPILUMAB
     Indication: DERMATITIS ATOPIC
     Route: 058
     Dates: start: 20170801, end: 20170801
  2. TACROLIMUS. [Concomitant]
     Active Substance: TACROLIMUS
     Indication: RASH
     Dosage: APPLY TO SKIN (FACE AND BODY)
     Dates: start: 20170608
  3. ZYRTEC [Concomitant]
     Active Substance: CETIRIZINE HYDROCHLORIDE
     Indication: RHINITIS ALLERGIC
     Dosage: 10MG
     Route: 065
     Dates: start: 201608
  4. FLONASE [Concomitant]
     Active Substance: FLUTICASONE PROPIONATE
     Indication: NASAL TURBINATE HYPERTROPHY
     Dosage: 2 SPRAY/NOSTRIL
     Route: 045
     Dates: start: 20170501
  5. PROAIR RESPICLICK [Concomitant]
     Active Substance: ALBUTEROL SULFATE
     Indication: ASTHMA
     Dosage: 2 PUFF/MOUTH TREE TIMES A DAY AS NEEDED DOSE:2 PUFF(S)
     Route: 048
     Dates: start: 20160825
  6. DUPIXENT [Suspect]
     Active Substance: DUPILUMAB
     Indication: DERMATITIS ATOPIC
     Route: 058
     Dates: start: 20170815

REACTIONS (1)
  - Eye disorder [Recovered/Resolved]

NARRATIVE: CASE EVENT DATE: 20170807
